FAERS Safety Report 13362442 (Version 1)
Quarter: 2017Q1

REPORT INFORMATION
  Report Type: Spontaneous
  Country: US (occurrence: US)
  Receive Date: 20170322
  Receipt Date: 20170322
  Transmission Date: 20170429
  Serious: Yes (Other)
  Sender: FDA-Public Use
  Company Number: None

PATIENT
  Age: 73 Year
  Sex: Male
  Weight: 95.4 kg

DRUGS (9)
  1. AMLODIPINE [Concomitant]
     Active Substance: AMLODIPINE BESYLATE
  2. COLCHICINE. [Concomitant]
     Active Substance: COLCHICINE
  3. SPIRONOLACTONE. [Concomitant]
     Active Substance: SPIRONOLACTONE
  4. VENLAFAXINE [Concomitant]
     Active Substance: VENLAFAXINE HYDROCHLORIDE
  5. SILDENAFIL. [Concomitant]
     Active Substance: SILDENAFIL
  6. PSEUDOEPHEDRINE [Concomitant]
     Active Substance: PSEUDOEPHEDRINE
  7. LOSARTAN. [Concomitant]
     Active Substance: LOSARTAN
  8. BUDESONIDE NASAL SPRAY [Concomitant]
     Active Substance: BUDESONIDE
  9. ROSUVASTATIN. [Suspect]
     Active Substance: ROSUVASTATIN
     Indication: BLOOD CHOLESTEROL INCREASED
     Dosage: 40 MG DAILY PARENTERAL
     Route: 051

REACTIONS (2)
  - Product substitution issue [None]
  - Myalgia [None]
